FAERS Safety Report 8541103-X (Version None)
Quarter: 2012Q3

REPORT INFORMATION
  Report Type: 
  Country: None (occurrence: None)
  Receive Date: 20120726
  Receipt Date: 20120227
  Transmission Date: 20120928
  Serious: No
  Sender: FDA-Public Use
  Company Number: US-ASTRAZENECA-2011SE50216

PATIENT
  Age: 81 Year
  Sex: Male
  Weight: 65.8 kg

DRUGS (22)
  1. SEROQUEL [Suspect]
     Route: 048
  2. SEROQUEL [Suspect]
     Route: 048
  3. SYNTHROID [Concomitant]
  4. ARICEPT [Concomitant]
  5. EXELON [Concomitant]
  6. GARLIC [Concomitant]
  7. POTASSIUM CL ER [Concomitant]
  8. SEROQUEL [Suspect]
     Indication: HALLUCINATION, AUDITORY
     Route: 048
     Dates: start: 20080101
  9. SEROQUEL [Suspect]
     Route: 048
  10. SEROQUEL [Suspect]
     Route: 048
  11. TYLENOL ARTHRITIS [Concomitant]
  12. SEROQUEL [Suspect]
     Route: 048
  13. AXONA [Concomitant]
  14. AZOPT [Concomitant]
     Dosage: 1 PERCENT EYEDROPS, 1.000 SUSPENSION DROPS TWO TIMES A DAY
  15. PROTEIN POWDER [Concomitant]
     Dosage: 1GM POWDER AS DIRECTED
  16. NAMENDA [Concomitant]
  17. NIACIN [Concomitant]
  18. VITAMIN B-12 [Concomitant]
  19. SEROQUEL [Suspect]
     Indication: HALLUCINATION
     Route: 048
     Dates: start: 20080101
  20. SEROQUEL [Suspect]
     Route: 048
  21. CALCIUM, VITAMIN D [Concomitant]
  22. TRAVATAN [Concomitant]
     Dosage: 0.004PERCENT 1 DROP DAILY

REACTIONS (8)
  - THERAPY CESSATION [None]
  - ORTHOSTATIC HYPOTENSION [None]
  - HALLUCINATION [None]
  - HEADACHE [None]
  - CONFUSIONAL STATE [None]
  - DRUG INEFFECTIVE FOR UNAPPROVED INDICATION [None]
  - OFF LABEL USE [None]
  - VERTIGO [None]
